FAERS Safety Report 9631101 (Version 1)
Quarter: 2013Q4

REPORT INFORMATION
  Report Type: Spontaneous
  Country: GB (occurrence: None)
  Receive Date: 20131015
  Receipt Date: 20131015
  Transmission Date: 20140711
  Serious: Yes (Other)
  Sender: FDA-Public Use
  Company Number: KAD201310-001329

PATIENT
  Age: 49 Year
  Sex: Female

DRUGS (3)
  1. RIBAVIRIN (RIBAVIRIN) [Suspect]
     Indication: HEPATITIS C
     Route: 048
     Dates: start: 20130218
  2. INCIVO (TELAPREVIR) [Suspect]
     Dosage: THRICE DAILY
     Route: 048
     Dates: start: 20130218
  3. INTERFERON ALFA-2A [Suspect]
     Indication: HEPATITIS C
     Dosage: INJECTION, ONCE WEEKLY
     Dates: start: 20130218

REACTIONS (7)
  - Dyspepsia [None]
  - Headache [None]
  - Mouth ulceration [None]
  - Nausea [None]
  - Pain of skin [None]
  - Rash pruritic [None]
  - Vomiting [None]
